FAERS Safety Report 5167307-4 (Version None)
Quarter: 2006Q4

REPORT INFORMATION
  Report Type: 
  Country: None (occurrence: None)
  Receive Date: 20061130
  Receipt Date: 20061121
  Transmission Date: 20070319
  Serious: Yes (Other)
  Sender: FDA-Public Use
  Company Number: SPV1-2006-01791

PATIENT
  Age: 68 Year
  Sex: Female
  Weight: 80.3 kg

DRUGS (4)
  1. AGRYLIN [Suspect]
     Indication: THROMBOCYTHAEMIA
     Dosage: SEE IMAGE
     Route: 048
     Dates: start: 20060924, end: 20061102
  2. AGRYLIN [Suspect]
     Indication: THROMBOCYTHAEMIA
     Dosage: SEE IMAGE
     Route: 048
     Dates: start: 20061103, end: 20061111
  3. AGRYLIN [Suspect]
     Indication: THROMBOCYTHAEMIA
     Dosage: SEE IMAGE
     Route: 048
     Dates: start: 20061112
  4. HYDROXYUREA [Concomitant]

REACTIONS (1)
  - PLATELET COUNT INCREASED [None]
